FAERS Safety Report 6115355-X (Version None)
Quarter: 2009Q1

REPORT INFORMATION
  Report Type: 
  Country: None (occurrence: None)
  Receive Date: 20090313
  Receipt Date: 20090311
  Transmission Date: 20090719
  Serious: Yes (Death)
  Sender: FDA-Public Use
  Company Number: RS-JNJFOC-20090301676

PATIENT
  Age: 26 Year
  Sex: Male

DRUGS (1)
  1. RISPOLEPT CONSTA [Suspect]
     Indication: SCHIZOPHRENIA
     Route: 050

REACTIONS (3)
  - DEATH [None]
  - FALL [None]
  - HALLUCINATION [None]
